FAERS Safety Report 22364693 (Version 2)
Quarter: 2023Q2

REPORT INFORMATION
  Report Type: Spontaneous
  Country: US (occurrence: US)
  Receive Date: 20230525
  Receipt Date: 20230604
  Transmission Date: 20230721
  Serious: Yes (Other)
  Sender: FDA-Public Use
  Company Number: US-BRISTOL-MYERS SQUIBB COMPANY-2023-070949

PATIENT
  Age: 82 Year
  Sex: Female

DRUGS (1)
  1. POMALYST [Suspect]
     Active Substance: POMALIDOMIDE
     Indication: Plasma cell myeloma
     Dosage: DAILY FOR 21 DAYS ON AND 7 DAYS OFF
     Route: 048
     Dates: start: 20230420

REACTIONS (5)
  - Dizziness [Unknown]
  - Supraventricular tachycardia [Unknown]
  - Constipation [Unknown]
  - Dizziness postural [Unknown]
  - Balance disorder [Unknown]

NARRATIVE: CASE EVENT DATE: 20230420
